FAERS Safety Report 14768234 (Version 1)
Quarter: 2018Q2

REPORT INFORMATION
  Report Type: Spontaneous
  Country: DE (occurrence: DE)
  Receive Date: 20180417
  Receipt Date: 20180417
  Transmission Date: 20180711
  Serious: Yes (Hospitalization)
  Sender: FDA-Public Use
  Company Number: PHHY2018DE066504

PATIENT
  Age: 64 Year
  Sex: Male

DRUGS (3)
  1. OXALIPLATIN. [Suspect]
     Active Substance: OXALIPLATIN
     Indication: RECTAL CANCER METASTATIC
     Dosage: 130 MG, (6TH CYCLE ON 02 MAR 2009)
     Route: 042
  2. AVASTIN [Suspect]
     Active Substance: BEVACIZUMAB
     Indication: RECTAL CANCER METASTATIC
     Dosage: 7.5 MG/KG, UNK (6TH CYCLE STARTED ON 02 MAR 2009)
     Route: 042
  3. XELODA [Suspect]
     Active Substance: CAPECITABINE
     Indication: RECTAL CANCER METASTATIC
     Dosage: 2000 MG/M2, UNK(6TH CYCLE 02 MAR 2009 TO 15 MAR 2009
     Route: 048

REACTIONS (4)
  - Gastritis [Recovered/Resolved]
  - Diarrhoea [Recovered/Resolved]
  - Erosive duodenitis [Recovered/Resolved]
  - Gastrooesophageal reflux disease [Recovered/Resolved]

NARRATIVE: CASE EVENT DATE: 20090315
